FAERS Safety Report 5169025-5 (Version None)
Quarter: 2006Q4

REPORT INFORMATION
  Report Type: 
  Country: None (occurrence: None)
  Receive Date: 20061211
  Receipt Date: 20061207
  Transmission Date: 20070319
  Serious: Yes (Death, Hospitalization)
  Sender: FDA-Public Use
  Company Number: JP-NOVOPROD-259143

PATIENT
  Age: 49 Year
  Sex: Female
  Weight: 45 kg

DRUGS (1)
  1. INNOLET R CHU [Suspect]
     Indication: DIABETES MELLITUS NON-INSULIN-DEPENDENT
     Dosage: 16 U, TID
     Route: 058
     Dates: start: 20050701, end: 20060512

REACTIONS (11)
  - ABSCESS [None]
  - ASPIRATION [None]
  - BLOOD PRESSURE DECREASED [None]
  - CARDIAC ARREST [None]
  - DEPRESSED LEVEL OF CONSCIOUSNESS [None]
  - ENTEROBACTER INFECTION [None]
  - HYPOGLYCAEMIA [None]
  - ILEUS PARALYTIC [None]
  - SEPSIS [None]
  - VENTRICULAR FIBRILLATION [None]
  - VOMITING [None]
